FAERS Safety Report 4887307-9 (Version None)
Quarter: 2005Q4

REPORT INFORMATION
  Report Type: 
  Country: None (occurrence: None)
  Receive Date: 20051221
  Receipt Date: 20050921
  Transmission Date: 20060501
  Serious: No
  Sender: FDA-Public Use
  Company Number: US-YAMANOUCHI-YPA20050503

PATIENT
  Age: 75 Year
  Sex: Female
  Weight: 79.3795 kg

DRUGS (6)
  1. VESICARE [Suspect]
     Indication: BLADDER DISORDER
     Dosage: 1 DF QD PO
     Route: 048
     Dates: start: 20050801, end: 20050901
  2. NORVASC [Concomitant]
  3. HYDROCODONE BITARTRATE [Concomitant]
  4. METOPROLOL [Concomitant]
  5. CELEBREX [Concomitant]
  6. ENALAPRIL [Concomitant]

REACTIONS (2)
  - PRURITUS [None]
  - RASH MACULAR [None]
